FAERS Safety Report 11073271 (Version 2)
Quarter: 2015Q2

REPORT INFORMATION
  Report Type: Spontaneous
  Country: LY (occurrence: LY)
  Receive Date: 20150428
  Receipt Date: 20150514
  Transmission Date: 20150821
  Serious: No
  Sender: FDA-Public Use
  Company Number: LY-ABBVIE-15K-097-1381939-00

PATIENT
  Age: 12 Year
  Sex: Female
  Weight: 41 kg

DRUGS (1)
  1. HUMIRA [Suspect]
     Active Substance: ADALIMUMAB
     Indication: JUVENILE IDIOPATHIC ARTHRITIS
     Route: 058
     Dates: start: 20130127

REACTIONS (4)
  - Juvenile idiopathic arthritis [Unknown]
  - Gait disturbance [Recovering/Resolving]
  - Arthropathy [Recovering/Resolving]
  - Local swelling [Recovering/Resolving]

NARRATIVE: CASE EVENT DATE: 20150118
